FAERS Safety Report 14392650 (Version 1)
Quarter: 2018Q1

REPORT INFORMATION
  Report Type: Spontaneous
  Country: FR (occurrence: FR)
  Receive Date: 20180116
  Receipt Date: 20180116
  Transmission Date: 20180509
  Serious: Yes (Other)
  Sender: FDA-Public Use
  Company Number: PHHY2017FR199046

PATIENT
  Sex: Male

DRUGS (15)
  1. CYTARABINE. [Suspect]
     Active Substance: CYTARABINE
     Dosage: 55 MG, QD (55 MG, QD (D31-34, D38-41))
     Route: 042
     Dates: start: 20170717
  2. DEXAMETHASONE. [Suspect]
     Active Substance: DEXAMETHASONE
     Dosage: 7.5 MG, QD (D1-D15)
     Route: 048
     Dates: start: 20170621
  3. METHOTREXATE. [Suspect]
     Active Substance: METHOTREXATE
     Dosage: 12 MG, QD ( (D4, D31))
     Route: 037
     Dates: start: 20170707
  4. ADRIAMYCIN [Suspect]
     Active Substance: DOXORUBICIN HYDROCHLORIDE
     Dosage: 18.4 MG, QD
     Route: 042
     Dates: start: 20170621
  5. VINCRISTINE [Suspect]
     Active Substance: VINCRISTINE
     Dosage: 1.1 MG, QD (D3, D18, D15)
     Route: 042
     Dates: start: 20170621
  6. PEGASPARGASE [Suspect]
     Active Substance: PEGASPARGASE
     Indication: ACUTE LYMPHOCYTIC LEUKAEMIA
     Dosage: 900 IU, QD
     Route: 042
     Dates: start: 20170610, end: 20170610
  7. BACTRIM [Concomitant]
     Active Substance: SULFAMETHOXAZOLE\TRIMETHOPRIM
     Indication: ANTIBIOTIC PROPHYLAXIS
     Route: 065
  8. ADRIAMYCIN [Suspect]
     Active Substance: DOXORUBICIN HYDROCHLORIDE
     Indication: ACUTE LYMPHOCYTIC LEUKAEMIA
     Dosage: 18.4 MG, QD
     Route: 042
     Dates: start: 20170607
  9. VINCRISTINE [Suspect]
     Active Substance: VINCRISTINE
     Indication: ACUTE LYMPHOCYTIC LEUKAEMIA
     Dosage: 1.1 MG, QD (D3, D18, D15)
     Route: 042
     Dates: start: 20170607
  10. CYTARABINE. [Suspect]
     Active Substance: CYTARABINE
     Indication: ACUTE LYMPHOCYTIC LEUKAEMIA
     Dosage: 55 MG, QD (55 MG, QD (D31-34, D38-41))
     Route: 042
     Dates: start: 20170707
  11. METHOTREXATE. [Suspect]
     Active Substance: METHOTREXATE
     Indication: ACUTE LYMPHOCYTIC LEUKAEMIA
     Dosage: 12 MG, QD ( (D4, D31))
     Route: 037
     Dates: start: 20170610
  12. DEXAMETHASONE. [Suspect]
     Active Substance: DEXAMETHASONE
     Indication: ACUTE LYMPHOCYTIC LEUKAEMIA
     Dosage: 7.5 MG, QD (D1-D15)
     Route: 048
     Dates: start: 20170607
  13. CYCLOPHOSPHAMIDE. [Suspect]
     Active Substance: CYCLOPHOSPHAMIDE
     Indication: ACUTE LYMPHOCYTIC LEUKAEMIA
     Dosage: 740 MG, QD (D29)
     Route: 042
     Dates: start: 20170705, end: 20170705
  14. TIOGUANINE [Suspect]
     Active Substance: THIOGUANINE ANHYDROUS
     Indication: ACUTE LYMPHOCYTIC LEUKAEMIA
     Dosage: 40 MG, QD (D29-42)
     Route: 048
     Dates: start: 20170705
  15. TIOGUANINE [Suspect]
     Active Substance: THIOGUANINE ANHYDROUS
     Dosage: 40 MG, QD (D29-42)
     Route: 048
     Dates: start: 20170718

REACTIONS (1)
  - Gamma-glutamyltransferase increased [Recovered/Resolved]

NARRATIVE: CASE EVENT DATE: 20170705
